FAERS Safety Report 6000398-7 (Version None)
Quarter: 2008Q4

REPORT INFORMATION
  Report Type: 
  Country: None (occurrence: None)
  Receive Date: 20081211
  Receipt Date: 20081211
  Transmission Date: 20090506
  Serious: Yes (Life-Threatening, Disabling)
  Sender: FDA-Public Use
  Company Number: None

PATIENT
  Age: 45 Year
  Sex: Female
  Weight: 70.3075 kg

DRUGS (1)
  1. BONIVA [Suspect]
     Indication: OSTEOPOROSIS PROPHYLAXIS
     Dosage: 150 MG ONCE MONTHLY PO
     Route: 048
     Dates: start: 20080103, end: 20080930

REACTIONS (6)
  - CONTACT LENS COMPLICATION [None]
  - DYSPNOEA [None]
  - DYSPNOEA EXERTIONAL [None]
  - EYE INFLAMMATION [None]
  - PALPITATIONS [None]
  - PULMONARY FUNCTION TEST DECREASED [None]
